FAERS Safety Report 7098033-2 (Version None)
Quarter: 2010Q4

REPORT INFORMATION
  Report Type: 
  Country: None (occurrence: None)
  Receive Date: 20101103
  Receipt Date: 20101019
  Transmission Date: 20110411
  Serious: Yes (Hospitalization, Other)
  Sender: FDA-Public Use
  Company Number: 011328

PATIENT
  Age: 53 Year
  Sex: Male

DRUGS (4)
  1. PLETAL [Suspect]
     Indication: CEREBRAL INFARCTION
     Dosage: 100 MG, BID, ORAL
     Route: 048
     Dates: start: 20100906, end: 20100929
  2. ASPIRIN [Suspect]
     Indication: CEREBRAL INFARCTION
     Dosage: 100 MG, BID, ORAL
     Route: 048
     Dates: start: 20100913, end: 20100929
  3. SLONNON (ARGATROBAN) [Concomitant]
  4. RADICUT (EDARAVONE) [Concomitant]

REACTIONS (2)
  - HAEMORRHAGIC CEREBRAL INFARCTION [None]
  - WHITE BLOOD CELL COUNT INCREASED [None]
